FAERS Safety Report 17535620 (Version 2)
Quarter: 2020Q2

REPORT INFORMATION
  Report Type: Spontaneous
  Country: US (occurrence: US)
  Receive Date: 20200313
  Receipt Date: 20200401
  Transmission Date: 20200713
  Serious: Yes (Other)
  Sender: FDA-Public Use
  Company Number: US-ROCHE-2566536

PATIENT
  Sex: Male

DRUGS (2)
  1. ERIVEDGE [Suspect]
     Active Substance: VISMODEGIB
     Indication: BASAL CELL CARCINOMA
     Dosage: 150 MG BY MOUTH DAILY ;ONGOING: NO
     Route: 048
     Dates: start: 201910
  2. CELEBREX [Concomitant]
     Active Substance: CELECOXIB

REACTIONS (3)
  - Basal cell carcinoma [Unknown]
  - Dysgeusia [Unknown]
  - Muscle spasms [Unknown]
